FAERS Safety Report 7985666-1 (Version None)
Quarter: 2011Q4

REPORT INFORMATION
  Report Type: 
  Country: None (occurrence: None)
  Receive Date: 20111216
  Receipt Date: 20111207
  Transmission Date: 20120403
  Serious: Yes (Hospitalization, Other)
  Sender: FDA-Public Use
  Company Number: DE-JNJFOC-20111200174

PATIENT
  Sex: Female

DRUGS (19)
  1. RISPERDAL [Concomitant]
     Dates: start: 20110518
  2. RISPERDAL [Concomitant]
     Dates: start: 20110622
  3. RISPERDAL [Concomitant]
     Dates: start: 20110617
  4. RISPERDAL [Concomitant]
     Dates: start: 20110609
  5. RISPERDAL [Concomitant]
     Dates: start: 20110608
  6. SEROQUEL [Concomitant]
     Dates: start: 20110603
  7. SEROQUEL [Concomitant]
     Dates: start: 20110601
  8. RISPERDAL [Concomitant]
     Dates: start: 20110516
  9. SEROQUEL [Concomitant]
     Dates: start: 20110619
  10. PALIPERIDONE [Suspect]
     Indication: SCHIZOPHRENIA
     Dates: start: 20110614, end: 20110621
  11. SOLIAN [Concomitant]
     Indication: PROPHYLAXIS
     Dates: start: 20110516
  12. SOLIAN [Concomitant]
     Dates: start: 20110518
  13. RISPERDAL [Concomitant]
     Dates: start: 20110606
  14. RISPERDAL [Concomitant]
     Dates: start: 20110621
  15. SOLIAN [Concomitant]
     Dates: start: 20110512
  16. SEROQUEL [Concomitant]
     Dates: start: 20110531
  17. SEROQUEL [Concomitant]
     Dates: start: 20110604
  18. SEROQUEL [Concomitant]
     Dates: start: 20110620
  19. RISPERDAL [Concomitant]
     Indication: PROPHYLAXIS
     Dates: start: 20110607

REACTIONS (1)
  - SCHIZOPHRENIA [None]
